FAERS Safety Report 9676192 (Version 3)
Quarter: 2014Q3

REPORT INFORMATION
  Report Type: Spontaneous
  Country: US (occurrence: US)
  Receive Date: 20131107
  Receipt Date: 20140804
  Transmission Date: 20150326
  Serious: Yes (Hospitalization, Other)
  Sender: FDA-Public Use
  Company Number: US-009507513-1311USA002190

PATIENT
  Sex: Female
  Weight: 68.93 kg

DRUGS (1)
  1. NUVARING [Suspect]
     Active Substance: ETHINYL ESTRADIOL\ETONOGESTREL
     Indication: CONTRACEPTION
     Dosage: 1 RING X3 WKS 1 RING FREE WK
     Route: 067
     Dates: start: 20110902

REACTIONS (11)
  - Abortion spontaneous [Unknown]
  - Tachycardia [Unknown]
  - Blood albumin decreased [Unknown]
  - Pulmonary embolism [Not Recovered/Not Resolved]
  - Hypokalaemia [Unknown]
  - Abortion spontaneous [Recovered/Resolved]
  - Antibody test positive [Unknown]
  - Blood urine present [Unknown]
  - Urine ketone body present [Unknown]
  - Protein urine present [Unknown]
  - Unintended pregnancy [Recovered/Resolved]

NARRATIVE: CASE EVENT DATE: 201110
